FAERS Safety Report 18912608 (Version 1)
Quarter: 2021Q1

REPORT INFORMATION
  Report Type: Report from Study
  Country: JP (occurrence: JP)
  Receive Date: 20210218
  Receipt Date: 20210218
  Transmission Date: 20210420
  Serious: Yes (Other)
  Sender: FDA-Public Use
  Company Number: JP-JNJFOC-A-CH2019-194202

PATIENT
  Age: 5 Year
  Sex: Female

DRUGS (22)
  1. WARFARIN [Concomitant]
     Active Substance: WARFARIN
     Indication: PULMONARY ARTERIAL HYPERTENSION
  2. DORNER [Concomitant]
     Active Substance: BERAPROST SODIUM
     Indication: PULMONARY ARTERIAL HYPERTENSION
     Route: 048
     Dates: start: 20160412
  3. FUROSEMIDE. [Concomitant]
     Active Substance: FUROSEMIDE
     Indication: RIGHT VENTRICULAR FAILURE
  4. OPSUMIT [Suspect]
     Active Substance: MACITENTAN
     Indication: PULMONARY ARTERIAL HYPERTENSION
     Dosage: 1.5 MG, QD
     Route: 048
     Dates: start: 20170113, end: 20170207
  5. FUROSEMIDE. [Concomitant]
     Active Substance: FUROSEMIDE
     Indication: PULMONARY ARTERIAL HYPERTENSION
  6. CAPTORIL [Concomitant]
     Active Substance: CAPTOPRIL
     Indication: PULMONARY ARTERIAL HYPERTENSION
  7. OPSUMIT [Suspect]
     Active Substance: MACITENTAN
     Route: 048
     Dates: start: 20170606, end: 20180730
  8. ADCIRCA [Concomitant]
     Active Substance: TADALAFIL
     Dosage: 14?16MG/Q.D.
     Route: 048
  9. DORNER [Concomitant]
     Active Substance: BERAPROST SODIUM
     Dosage: 9.3?10.7UG
     Route: 048
  10. ALDACTONE A [Concomitant]
     Active Substance: SPIRONOLACTONE
     Indication: PULMONARY ARTERIAL HYPERTENSION
  11. DIGOSIN [Concomitant]
     Active Substance: DIGOXIN
     Indication: PULMONARY ARTERIAL HYPERTENSION
  12. HEPARIN SODIUM. [Concomitant]
     Active Substance: HEPARIN SODIUM
     Indication: SHOCK
  13. OPSUMIT [Suspect]
     Active Substance: MACITENTAN
     Route: 048
     Dates: start: 20180731
  14. OXYGEN. [Concomitant]
     Active Substance: OXYGEN
  15. OPSUMIT [Suspect]
     Active Substance: MACITENTAN
     Dosage: 3 MG, QD
     Route: 048
     Dates: start: 20170208, end: 20170605
  16. ADCIRCA [Concomitant]
     Active Substance: TADALAFIL
     Indication: PULMONARY ARTERIAL HYPERTENSION
     Route: 048
     Dates: start: 20161206
  17. DORNER [Concomitant]
     Active Substance: BERAPROST SODIUM
     Route: 048
     Dates: end: 20181212
  18. SAMSCA [Concomitant]
     Active Substance: TOLVAPTAN
     Indication: PULMONARY ARTERIAL HYPERTENSION
  19. UPTRAVI [Concomitant]
     Active Substance: SELEXIPAG
     Indication: PULMONARY ARTERIAL HYPERTENSION
     Dosage: 0.064?0.512MG/B.I.D.
     Route: 048
  20. ENALART [Concomitant]
     Active Substance: ENALAPRIL MALEATE
     Indication: RIGHT VENTRICULAR FAILURE
  21. ADCIRCA [Concomitant]
     Active Substance: TADALAFIL
     Route: 048
  22. ARTIST [Concomitant]
     Active Substance: CARVEDILOL
     Indication: PULMONARY ARTERIAL HYPERTENSION

REACTIONS (4)
  - Hepatic function abnormal [Recovered/Resolved]
  - Upper respiratory tract inflammation [Recovering/Resolving]
  - Off label use [Unknown]
  - Pancytopenia [Recovering/Resolving]

NARRATIVE: CASE EVENT DATE: 20170204
